FAERS Safety Report 11259695 (Version 1)
Quarter: 2015Q3

REPORT INFORMATION
  Report Type: Spontaneous
  Country: US (occurrence: US)
  Receive Date: 20150710
  Receipt Date: 20150710
  Transmission Date: 20151125
  Serious: No
  Sender: FDA-Public Use
  Company Number: US-MALLINCKRODT-T201403594

PATIENT
  Age: 53 Year
  Sex: Female

DRUGS (4)
  1. OXYCODONE/ACETAMINOPHEN [Suspect]
     Active Substance: ACETAMINOPHEN\OXYCODONE HYDROCHLORIDE
     Indication: PAIN
     Dosage: 5/325 MG, TID
     Route: 048
     Dates: start: 20140919
  2. AMITRIPTYLINE [Concomitant]
     Active Substance: AMITRIPTYLINE
     Dosage: 25 MG, UNK
     Dates: end: 201409
  3. TRAMADOL. [Concomitant]
     Active Substance: TRAMADOL
     Dosage: 50 MG, UNK
     Dates: end: 201409
  4. HYDROCODONE BITARTRATE AND ACETAMINOPHEN [Concomitant]
     Active Substance: ACETAMINOPHEN\HYDROCODONE BITARTRATE
     Dosage: 10/325 MG, UNK
     Dates: end: 201409

REACTIONS (5)
  - Hepatic enzyme increased [Recovering/Resolving]
  - Product quality issue [Unknown]
  - Electrocardiogram abnormal [Recovering/Resolving]
  - Product tampering [Unknown]
  - Renal disorder [Unknown]

NARRATIVE: CASE EVENT DATE: 20140920
